FAERS Safety Report 6845741-1 (Version None)
Quarter: 2010Q3

REPORT INFORMATION
  Report Type: 
  Country: None (occurrence: None)
  Receive Date: 20100715
  Receipt Date: 20070822
  Transmission Date: 20110219
  Serious: No
  Sender: FDA-Public Use
  Company Number: US-PFIZER INC-2007071399

PATIENT
  Sex: Male
  Weight: 115.9 kg

DRUGS (15)
  1. CHANTIX [Suspect]
     Indication: SMOKING CESSATION THERAPY
     Dates: start: 20070707
  2. PRAVACHOL [Concomitant]
  3. VALSARTAN [Concomitant]
  4. GEMFIBROZIL [Concomitant]
  5. METOPROLOL [Concomitant]
  6. AVANDIA [Concomitant]
  7. GLIPIZIDE [Concomitant]
  8. XANAX [Concomitant]
  9. CAPTOPRIL [Concomitant]
  10. METFORMIN HCL [Concomitant]
  11. HYDROCHLOROTHIAZIDE [Concomitant]
     Indication: BLOOD PRESSURE
  12. FOLIC ACID [Concomitant]
  13. ACETYLSALICYLIC ACID [Concomitant]
  14. VITAMIN E [Concomitant]
  15. MULTI-VITAMINS [Concomitant]

REACTIONS (1)
  - COUGH [None]
